FAERS Safety Report 16676898 (Version 2)
Quarter: 2019Q3

REPORT INFORMATION
  Report Type: Spontaneous
  Country: PT (occurrence: PT)
  Receive Date: 20190807
  Receipt Date: 20190831
  Transmission Date: 20191004
  Serious: Yes (Life-Threatening, Hospitalization, Other)
  Sender: FDA-Public Use
  Company Number: PT-AUROBINDO-AUR-APL-2019-043778

PATIENT

DRUGS (14)
  1. FENTANYL. [Interacting]
     Active Substance: FENTANYL
     Dosage: 150 MICROGRAM
     Route: 065
  2. METAMIZOLE [Interacting]
     Active Substance: METAMIZOLE
     Indication: ANALGESIC THERAPY
     Dosage: 2000 MILLIGRAM
     Route: 065
  3. FENTANYL. [Interacting]
     Active Substance: FENTANYL
     Indication: INDUCTION OF ANAESTHESIA
     Dosage: 100 MICROGRAM
     Route: 065
  4. ROCURONIUM [Interacting]
     Active Substance: ROCURONIUM BROMIDE
     Indication: INDUCTION OF ANAESTHESIA
     Dosage: 20 MILLIGRAM
     Route: 065
  5. SEVOFLURANE. [Interacting]
     Active Substance: SEVOFLURANE
     Indication: MAINTENANCE OF ANAESTHESIA
     Dosage: UNK (1,0-1,2% IN A MIX OF 45% OF O2 AND AIR)
     Route: 055
  6. PROPOFOL. [Interacting]
     Active Substance: PROPOFOL
     Indication: INDUCTION OF ANAESTHESIA
     Dosage: 150 MILLIGRAM
     Route: 065
  7. MIDAZOLAM [Interacting]
     Active Substance: MIDAZOLAM HYDROCHLORIDE
     Indication: ANAESTHETIC PREMEDICATION
  8. REMIFENTANIL [Interacting]
     Active Substance: REMIFENTANIL
     Indication: MAINTENANCE OF ANAESTHESIA
     Dosage: 0.15 MICROGRAM/KILOGRAM (0.15 MICROGRAM/KILOGRAM (0.15 MICROGRAM/KILOGRAM,0.15 MINUTE))
     Route: 042
  9. MIDAZOLAM [Interacting]
     Active Substance: MIDAZOLAM HYDROCHLORIDE
     Indication: PREMEDICATION
     Dosage: 3 MILLIGRAM
     Route: 065
     Dates: start: 20180614, end: 20180614
  10. ROCURONIUM [Interacting]
     Active Substance: ROCURONIUM BROMIDE
     Dosage: 50 MILLIGRAM
     Route: 042
  11. PARECOXIB [Interacting]
     Active Substance: PARECOXIB
     Indication: ANALGESIC THERAPY
     Dosage: 40 MILLIGRAM
     Route: 065
  12. PARACETAMOL [Suspect]
     Active Substance: ACETAMINOPHEN
     Indication: ANALGESIC THERAPY
     Dosage: 1000 MILLIGRAM
     Route: 065
  13. REMIFENTANIL POWDER FOR CONCENTRATE FOR SOLUTION FOR INFUSION [Interacting]
     Active Substance: REMIFENTANIL
     Indication: MAINTENANCE OF ANAESTHESIA
     Dosage: UNK
     Route: 005
  14. PROPOFOL. [Interacting]
     Active Substance: PROPOFOL
     Indication: GENERAL ANAESTHESIA
     Dosage: 15 MILLIGRAM
     Route: 065

REACTIONS (3)
  - Drug interaction [Recovered/Resolved]
  - Neuromuscular block prolonged [Recovered/Resolved]
  - Respiratory acidosis [Unknown]
